FAERS Safety Report 15037053 (Version 1)
Quarter: 2018Q2

REPORT INFORMATION
  Report Type: Report from Study
  Country: GB (occurrence: GB)
  Receive Date: 20180620
  Receipt Date: 20180620
  Transmission Date: 20180711
  Serious: Yes (Other)
  Sender: FDA-Public Use
  Company Number: GB-EMD SERONO-9031809

PATIENT
  Sex: Male

DRUGS (2)
  1. SAIZEN [Suspect]
     Active Substance: SOMATROPIN
     Indication: GROWTH HORMONE DEFICIENCY
     Dosage: CARTRIDGES
     Route: 058
     Dates: start: 20130923
  2. SAIZEN [Suspect]
     Active Substance: SOMATROPIN
     Dosage: RESTARTED
     Dates: start: 201806

REACTIONS (6)
  - Arthralgia [Unknown]
  - Product supply issue [Recovered/Resolved]
  - Gait disturbance [Recovering/Resolving]
  - Gastrointestinal disorder [Unknown]
  - Treatment noncompliance [Recovered/Resolved]
  - Bone pain [Unknown]
